FAERS Safety Report 22289649 (Version 1)
Quarter: 2023Q2

REPORT INFORMATION
  Report Type: Spontaneous
  Country: US (occurrence: None)
  Receive Date: 20230504
  Receipt Date: 20230504
  Transmission Date: 20230722
  Serious: Yes (Other)
  Sender: FDA-Public Use
  Company Number: None

PATIENT
  Age: 11 Year
  Sex: Female
  Weight: 24.4 kg

DRUGS (1)
  1. VOXZOGO [Suspect]
     Active Substance: VOSORITIDE
     Indication: Osteochondrodysplasia
     Dosage: FREQUENCY : DAILY;?
     Route: 058
     Dates: start: 20220523

REACTIONS (1)
  - Syringomyelia [None]

NARRATIVE: CASE EVENT DATE: 20230421
